FAERS Safety Report 26082524 (Version 1)
Quarter: 2025Q4

REPORT INFORMATION
  Report Type: Spontaneous
  Country: JP (occurrence: JP)
  Receive Date: 20251124
  Receipt Date: 20251124
  Transmission Date: 20260118
  Serious: Yes (Other)
  Sender: CHATTEM
  Company Number: JP-SA-2025SA346660

PATIENT
  Age: 8 Year
  Sex: Male

DRUGS (5)
  1. FEXOFENADINE HYDROCHLORIDE [Suspect]
     Active Substance: FEXOFENADINE HYDROCHLORIDE
     Indication: Product used for unknown indication
     Dosage: UNK
     Route: 048
  2. DIMEMORFAN PHOSPHATE [Suspect]
     Active Substance: DIMEMORFAN PHOSPHATE
     Indication: Product used for unknown indication
     Dosage: UNK
     Route: 048
  3. AMBROXOL HYDROCHLORIDE [Concomitant]
     Active Substance: AMBROXOL HYDROCHLORIDE
     Indication: Product used for unknown indication
     Dosage: UNK
  4. CARBOCYSTEINE [Concomitant]
     Active Substance: CARBOCYSTEINE
     Indication: Product used for unknown indication
     Dosage: UNK
  5. TULOBUTEROL [Concomitant]
     Active Substance: TULOBUTEROL
     Indication: Product used for unknown indication
     Dosage: UNK

REACTIONS (1)
  - Hallucination [Unknown]
